FAERS Safety Report 24547304 (Version 1)
Quarter: 2024Q4

REPORT INFORMATION
  Report Type: Spontaneous
  Country: US (occurrence: US)
  Receive Date: 20241025
  Receipt Date: 20241025
  Transmission Date: 20250114
  Serious: No
  Sender: BIOGEN
  Company Number: US-BIOGEN-2024BI01245977

PATIENT
  Age: 57 Year
  Sex: Female

DRUGS (7)
  1. VUMERITY [Suspect]
     Active Substance: DIROXIMEL FUMARATE
     Indication: Multiple sclerosis
     Dosage: START DATE ALSO REPORTED AS 13-JAN-2024
     Route: 050
     Dates: start: 20240110
  2. VITAMIN D3 [Concomitant]
     Active Substance: CHOLECALCIFEROL
     Route: 050
  3. TOLTERODINE TARTRATE [Concomitant]
     Active Substance: TOLTERODINE TARTRATE
     Route: 050
  4. FLAXSEED [Concomitant]
     Active Substance: FLAX SEED
     Dosage: SOFT GEL
     Route: 050
  5. OMEGA-3 ACIDS [Concomitant]
     Active Substance: OMEGA-3 FATTY ACIDS
     Route: 050
  6. VITAMIN D3 [Concomitant]
     Active Substance: CHOLECALCIFEROL
     Route: 050
  7. GINKGO [Concomitant]
     Active Substance: GINKGO
     Route: 050

REACTIONS (14)
  - Fatigue [Unknown]
  - Muscle spasms [Unknown]
  - Chills [Unknown]
  - Pyrexia [Unknown]
  - Joint swelling [Unknown]
  - Peripheral swelling [Unknown]
  - Urinary incontinence [Unknown]
  - Bradykinesia [Unknown]
  - Flatulence [Recovered/Resolved]
  - Abdominal pain upper [Unknown]
  - Nausea [Unknown]
  - Vomiting [Unknown]
  - Diarrhoea [Unknown]
  - Flushing [Recovered/Resolved]

NARRATIVE: CASE EVENT DATE: 20240101
